FAERS Safety Report 17999429 (Version 1)
Quarter: 2020Q3

REPORT INFORMATION
  Report Type: Spontaneous
  Country: US (occurrence: US)
  Receive Date: 20200709
  Receipt Date: 20200709
  Transmission Date: 20201103
  Serious: Yes (Other)
  Sender: FDA-Public Use
  Company Number: None

PATIENT
  Age: 38 Year
  Sex: Female
  Weight: 85.3 kg

DRUGS (13)
  1. ZYRTEC 10MG DAILY [Concomitant]
     Dates: start: 20200705
  2. SINGULAIR 10MG DAILY [Concomitant]
     Dates: start: 20200705
  3. FLONASE DAILY [Concomitant]
     Dates: start: 20200705
  4. DUO NEBS [Concomitant]
     Dates: start: 20200705
  5. AMLODIPINE 5MG DAILY [Concomitant]
     Dates: start: 20200705
  6. AZITHROMYCIN 500MG DAILY [Suspect]
     Active Substance: AZITHROMYCIN
     Dates: start: 20200704, end: 20200705
  7. COLACE [Concomitant]
     Active Substance: DOCUSATE SODIUM
  8. LOVENOX 40MG DAILY [Concomitant]
     Dates: start: 20200705
  9. ROCEPHIN 1G TWICE DAILY [Concomitant]
     Dates: start: 20200704
  10. DEXAMETHASONE 6MG IV DAILY [Concomitant]
     Dates: start: 20200704
  11. ASCORBIC ACID 500MG Q12 [Concomitant]
     Dates: start: 20200704
  12. REMDESIVIR. [Suspect]
     Active Substance: REMDESIVIR
     Indication: COVID-19
     Dosage: ?          OTHER FREQUENCY:ONCE;?
     Route: 042
     Dates: start: 20200705, end: 20200706
  13. ZINC SULFATE. [Concomitant]
     Active Substance: ZINC SULFATE
     Dates: start: 20200704

REACTIONS (3)
  - Dyspnoea [None]
  - Lip swelling [None]
  - Choking sensation [None]

NARRATIVE: CASE EVENT DATE: 20200706
